FAERS Safety Report 7938045-7 (Version None)
Quarter: 2011Q4

REPORT INFORMATION
  Report Type: 
  Country: None (occurrence: None)
  Receive Date: 20111123
  Receipt Date: 20111116
  Transmission Date: 20120403
  Serious: Yes (Hospitalization, Other)
  Sender: FDA-Public Use
  Company Number: KR-ABBOTT-11P-090-0874746-00

PATIENT
  Age: 55 Year
  Sex: Male

DRUGS (3)
  1. 3TC/AZT [Concomitant]
     Indication: ANTIRETROVIRAL THERAPY
     Dates: start: 20060401, end: 20100705
  2. KALETRA [Suspect]
     Indication: HIV INFECTION
     Route: 048
     Dates: start: 20100706
  3. RALTEGRAVIR [Concomitant]
     Indication: ANTIRETROVIRAL THERAPY
     Dates: start: 20100706

REACTIONS (6)
  - ARTHRITIS BACTERIAL [None]
  - JOINT SWELLING [None]
  - PRODUCTIVE COUGH [None]
  - DYSPNOEA [None]
  - PULMONARY TUBERCULOSIS [None]
  - PNEUMONIA BACTERIAL [None]
